FAERS Safety Report 11044621 (Version 2)
Quarter: 2015Q2

REPORT INFORMATION
  Report Type: Report from Study
  Country: US (occurrence: US)
  Receive Date: 20150417
  Receipt Date: 20150420
  Transmission Date: 20150821
  Serious: No
  Sender: FDA-Public Use
  Company Number: US-BAXTER-2015BAX019663

PATIENT
  Sex: Female

DRUGS (1)
  1. GAMMAGARD LIQUID [Suspect]
     Active Substance: HUMAN IMMUNOGLOBULIN G
     Indication: PRODUCT USED FOR UNKNOWN INDICATION
     Dosage: 6 WEEKS AGO
     Route: 058

REACTIONS (7)
  - Lack of spontaneous speech [Recovering/Resolving]
  - Dyspnoea [Recovering/Resolving]
  - Hypersomnia [Recovering/Resolving]
  - Dizziness [Recovering/Resolving]
  - Dysphonia [Recovering/Resolving]
  - Feeling abnormal [Recovered/Resolved]
  - Tremor [Recovering/Resolving]
